FAERS Safety Report 6711352-1 (Version None)
Quarter: 2010Q2

REPORT INFORMATION
  Report Type: 
  Country: None (occurrence: None)
  Receive Date: 20100505
  Receipt Date: 20100422
  Transmission Date: 20101027
  Serious: Yes (Hospitalization, Disabling)
  Sender: FDA-Public Use
  Company Number: GB-ELI_LILLY_AND_COMPANY-GB201003008420

PATIENT
  Sex: Female
  Weight: 52.4 kg

DRUGS (6)
  1. PEMETREXED [Suspect]
     Indication: NON-SMALL CELL LUNG CANCER
     Dosage: 705 MG, ONCE EVERY THREE WEEKS
     Route: 042
     Dates: start: 20090917, end: 20100212
  2. CLOPIDOGREL [Concomitant]
     Indication: ANTIPLATELET THERAPY
     Dates: start: 20100330
  3. PREDNISOLONE [Concomitant]
     Indication: RAYNAUD'S PHENOMENON
     Dates: start: 20100330
  4. OMEPRAZOLE [Concomitant]
     Indication: DYSPEPSIA
     Dates: start: 20100330
  5. TARCEVA [Concomitant]
     Indication: NON-SMALL CELL LUNG CANCER
     Dates: start: 20100305, end: 20100324
  6. NIFEDIPINE [Concomitant]
     Indication: RAYNAUD'S PHENOMENON
     Dates: start: 20100330

REACTIONS (1)
  - RAYNAUD'S PHENOMENON [None]
